FAERS Safety Report 15568237 (Version 1)
Quarter: 2018Q4

REPORT INFORMATION
  Report Type: Spontaneous
  Country: US (occurrence: US)
  Receive Date: 20181030
  Receipt Date: 20181030
  Transmission Date: 20190205
  Serious: Yes (Death, Hospitalization, Other)
  Sender: FDA-Public Use
  Company Number: US-AMGEN-USASP2018150831

PATIENT
  Age: 68 Year
  Sex: Male

DRUGS (6)
  1. PENTAMIDINE [Concomitant]
     Active Substance: PENTAMIDINE
     Indication: PROPHYLAXIS
     Dosage: UNK
  2. MYCOPHENOLATE MOFETIL. [Suspect]
     Active Substance: MYCOPHENOLATE MOFETIL
     Indication: IMMUNOSUPPRESSION
     Dosage: UNK
     Route: 065
  3. FILGRASTIM [Suspect]
     Active Substance: FILGRASTIM
     Indication: PANCYTOPENIA
     Dosage: UNK
     Route: 065
  4. TACROLIMUS. [Suspect]
     Active Substance: TACROLIMUS
     Indication: IMMUNOSUPPRESSION
     Dosage: UNK
     Route: 065
  5. BASILIXIMAB [Suspect]
     Active Substance: BASILIXIMAB
     Indication: LIVER TRANSPLANT
     Dosage: UNK
     Route: 065
  6. POSACONAZOLE [Concomitant]
     Active Substance: POSACONAZOLE
     Indication: PROPHYLAXIS
     Dosage: UNK

REACTIONS (15)
  - Confusional state [Unknown]
  - Respiratory failure [Unknown]
  - Asthenia [Unknown]
  - Pancytopenia [Unknown]
  - Pneumonia bacterial [Not Recovered/Not Resolved]
  - Graft versus host disease [Not Recovered/Not Resolved]
  - Mental status changes [Not Recovered/Not Resolved]
  - Cytomegalovirus test positive [Unknown]
  - Neutropenia [Not Recovered/Not Resolved]
  - Off label use [Unknown]
  - Sepsis [Fatal]
  - Status epilepticus [Recovering/Resolving]
  - Multiple organ dysfunction syndrome [Fatal]
  - Graft versus host disease in skin [Unknown]
  - Peripheral sensorimotor neuropathy [Unknown]
